FAERS Safety Report 4274962-X (Version None)
Quarter: 2004Q1

REPORT INFORMATION
  Report Type: 
  Country: None (occurrence: None)
  Receive Date: 20040120
  Receipt Date: 20040108
  Transmission Date: 20041129
  Serious: Yes (Life-Threatening)
  Sender: FDA-Public Use
  Company Number: FLUV00304000108

PATIENT
  Age: 84 Year
  Sex: Female

DRUGS (1)
  1. LUVOX [Suspect]
     Indication: ILL-DEFINED DISORDER
     Dosage: 50 MG DAILY PO
     Route: 048
     Dates: start: 20031118, end: 20031231

REACTIONS (1)
  - ELECTROCARDIOGRAM QT PROLONGED [None]
